FAERS Safety Report 13840993 (Version 2)
Quarter: 2017Q3

REPORT INFORMATION
  Report Type: Report from Study
  Country: US (occurrence: US)
  Receive Date: 20170807
  Receipt Date: 20170908
  Transmission Date: 20171127
  Serious: Yes (Hospitalization)
  Sender: FDA-Public Use
  Company Number: US-VERTEX PHARMACEUTICALS-2017-004255

PATIENT
  Sex: Female
  Weight: 48 kg

DRUGS (24)
  1. FLUTICASONE. [Concomitant]
     Active Substance: FLUTICASONE
     Dosage: 2 PUFFS, BID
     Route: 055
  2. INSULIN ASPART [Concomitant]
     Active Substance: INSULIN ASPART
     Dosage: USE AS DIRECTED PER CORRECTION FACTOR
     Route: 058
  3. NEXIUM [Concomitant]
     Active Substance: ESOMEPRAZOLE MAGNESIUM
     Dosage: 1 DF, QD
     Route: 048
  4. KALYDECO [Suspect]
     Active Substance: IVACAFTOR
     Indication: CYSTIC FIBROSIS
     Dosage: 150 MG, BID
     Route: 048
     Dates: start: 20170104
  5. MVW COMPLETE [Concomitant]
     Dosage: 2 DF, QD (AT BEDTIME)
     Route: 048
  6. AZITHROMYCIN ANHYDROUS. [Concomitant]
     Active Substance: AZITHROMYCIN ANHYDROUS
     Dosage: 1 DF, DAILY ON MONDAY, WEDNESDAY AND FRIDAY
     Route: 048
  7. TOBI [Concomitant]
     Active Substance: TOBRAMYCIN
     Dosage: 1 DF, BID, FOR 2 WEEKS ON 2 WEEKS OFF
     Route: 055
  8. ALBUTEROL. [Concomitant]
     Active Substance: ALBUTEROL
     Indication: COUGH
  9. DORNASE ALFA. [Concomitant]
     Active Substance: DORNASE ALFA
     Dosage: 1 VIAL NIGHTLY
     Route: 055
  10. XYZAL [Concomitant]
     Active Substance: LEVOCETIRIZINE DIHYDROCHLORIDE
     Dosage: 1 DF, NIGHTLY
     Route: 048
  11. JOLIVETTE [Concomitant]
     Active Substance: NORETHINDRONE
     Dosage: 1 DF, QD
     Route: 048
  12. VENTOLIN HFA [Concomitant]
     Active Substance: ALBUTEROL SULFATE
     Indication: DYSPNOEA
  13. VENTOLIN HFA [Concomitant]
     Active Substance: ALBUTEROL SULFATE
     Indication: WHEEZING
     Dosage: 4 PUFFS, EVERY 4 HOURS, PRN
     Route: 055
  14. SERTRALINE [Concomitant]
     Active Substance: SERTRALINE HYDROCHLORIDE
     Dosage: 1 DF, QD (AT BEDTIME)
     Route: 048
  15. LACTOBACILLUS RHAMNOSUS [Concomitant]
     Active Substance: LACTOBACILLUS RHAMNOSUS
     Indication: DIARRHOEA
     Dosage: 1 DF, TID, PRN
     Route: 048
  16. ZENPEP [Concomitant]
     Active Substance: PANCRELIPASE AMYLASE\PANCRELIPASE LIPASE\PANCRELIPASE PROTEASE
     Dosage: 4 DF WITH 3 MEALS AND 4 DF WITH 3 SNACKS
     Route: 048
  17. CAYSTON [Concomitant]
     Active Substance: AZTREONAM
     Dosage: 1 VIAL, TID, EVERY TWO WEEKS ALTERNATING WITH TOBI
     Route: 055
  18. CEFEPIME [Concomitant]
     Active Substance: CEFEPIME HYDROCHLORIDE
     Dosage: 2000 MG, BID
     Route: 042
  19. FLUTICASONE. [Concomitant]
     Active Substance: FLUTICASONE
     Dosage: 2 SPRAY, BID
     Route: 045
  20. ALBUTEROL. [Concomitant]
     Active Substance: ALBUTEROL
     Indication: WHEEZING
     Dosage: 1 DF, BID WITH CPT AND EVERY 4 HOURS, PRN
     Route: 055
  21. CYPROHEPTADINE. [Concomitant]
     Active Substance: CYPROHEPTADINE
     Dosage: 1 DF, TID
     Route: 048
  22. LANTUS [Concomitant]
     Active Substance: INSULIN GLARGINE
     Dosage: 6 UT, QD
     Route: 058
  23. TOBI [Concomitant]
     Active Substance: TOBRAMYCIN
     Dosage: 450 MG, QD
     Route: 042
  24. POLYETHYLENE GLYCOL 3350. [Concomitant]
     Active Substance: POLYETHYLENE GLYCOL 3350
     Indication: CONSTIPATION
     Dosage: MIX 17 G IN 8 OZ OF WATER/ JUICE PRN
     Route: 048

REACTIONS (2)
  - Sinusitis [Not Recovered/Not Resolved]
  - Infective pulmonary exacerbation of cystic fibrosis [Recovering/Resolving]

NARRATIVE: CASE EVENT DATE: 2017
